FAERS Safety Report 11287941 (Version 1)
Quarter: 2015Q3

REPORT INFORMATION
  Report Type: Spontaneous
  Country: US (occurrence: US)
  Receive Date: 20150721
  Receipt Date: 20150721
  Transmission Date: 20151125
  Serious: Yes (Other)
  Sender: FDA-Public Use
  Company Number: US-SA-2015SA105006

PATIENT
  Sex: Female

DRUGS (2)
  1. AUBAGIO [Suspect]
     Active Substance: TERIFLUNOMIDE
  2. AUBAGIO [Suspect]
     Active Substance: TERIFLUNOMIDE

REACTIONS (5)
  - Trigeminal neuralgia [Unknown]
  - Onychoclasis [Unknown]
  - Diarrhoea [Unknown]
  - Pancreatitis [Recovered/Resolved]
  - Pupillary disorder [Unknown]

NARRATIVE: CASE EVENT DATE: 201410
